FAERS Safety Report 8028040-4 (Version None)
Quarter: 2012Q1

REPORT INFORMATION
  Report Type: 
  Country: None (occurrence: None)
  Receive Date: 20120106
  Receipt Date: 20120103
  Transmission Date: 20120608
  Serious: Yes (Hospitalization, Other)
  Sender: FDA-Public Use
  Company Number: US-ROCHE-1027255

PATIENT
  Sex: Female
  Weight: 15.118 kg

DRUGS (15)
  1. THYROID MEDICATION [Concomitant]
  2. LEVOTHYROXINE SODIUM [Concomitant]
  3. LEXAPRO [Concomitant]
  4. TRAZODONE HCL [Concomitant]
  5. HYDROCODONE [Concomitant]
  6. METHADONE HCL [Concomitant]
  7. PEGINTERFERON ALFA-2B [Suspect]
     Dates: start: 20091101, end: 20100301
  8. COPEGUS [Suspect]
     Indication: HEPATITIS C
     Dates: start: 20091101, end: 20100328
  9. CYMBALTA [Concomitant]
  10. OXYCODONE HCL [Concomitant]
  11. PEGINTERFERON ALFA-2B [Suspect]
     Indication: HEPATITIS C
     Dates: start: 20110919
  12. FOLIC ACID [Concomitant]
  13. COPEGUS [Suspect]
     Dates: start: 20110919
  14. TEGRETOL [Concomitant]
  15. CELEBREX [Concomitant]

REACTIONS (8)
  - DEEP VEIN THROMBOSIS [None]
  - HEMIPARESIS [None]
  - CONVULSION [None]
  - BACK PAIN [None]
  - ASTHENIA [None]
  - DRY SKIN [None]
  - GRAND MAL CONVULSION [None]
  - RASH [None]
